FAERS Safety Report 10376190 (Version 1)
Quarter: 2014Q3

REPORT INFORMATION
  Report Type: Spontaneous
  Country: US (occurrence: US)
  Receive Date: 20140811
  Receipt Date: 20140811
  Transmission Date: 20150326
  Serious: No
  Sender: FDA-Public Use
  Company Number: US-ASTRAZENECA-2013SE65698

PATIENT
  Sex: Female

DRUGS (4)
  1. ANASTROZOLE. [Suspect]
     Active Substance: ANASTROZOLE
     Dosage: MANUFACTURER MYLAN
     Route: 048
     Dates: start: 201306, end: 201307
  2. ANASTROZOLE. [Suspect]
     Active Substance: ANASTROZOLE
     Dosage: GENERIC
     Route: 048
     Dates: start: 201302, end: 201306
  3. ANASTROZOLE. [Suspect]
     Active Substance: ANASTROZOLE
     Dosage: GENERIC
     Route: 048
     Dates: start: 201307
  4. ANASTROZOLE. [Suspect]
     Active Substance: ANASTROZOLE
     Dosage: MANUFACTURER MYLAN
     Route: 048

REACTIONS (2)
  - Adverse event [Unknown]
  - Pruritus [Unknown]

NARRATIVE: CASE EVENT DATE: 201302
